FAERS Safety Report 18035650 (Version 1)
Quarter: 2020Q3

REPORT INFORMATION
  Report Type: Spontaneous
  Country: US (occurrence: US)
  Receive Date: 20200716
  Receipt Date: 20200716
  Transmission Date: 20201103
  Serious: Yes (Life-Threatening, Hospitalization)
  Sender: FDA-Public Use
  Company Number: None

PATIENT
  Age: 69 Year
  Sex: Male

DRUGS (1)
  1. HEPARIN (HEPARIN CA 25000UNT/ML INJ) [Suspect]
     Active Substance: HEPARIN CALCIUM
     Indication: CARDIOVERSION
     Dates: start: 20190825

REACTIONS (2)
  - Haemorrhage [None]
  - Gastric haemorrhage [None]

NARRATIVE: CASE EVENT DATE: 20190825
